FAERS Safety Report 5909650-4 (Version None)
Quarter: 2008Q4

REPORT INFORMATION
  Report Type: 
  Country: None (occurrence: None)
  Receive Date: 20081002
  Receipt Date: 20080924
  Transmission Date: 20090506
  Serious: Yes (Hospitalization)
  Sender: FDA-Public Use
  Company Number: 2008BI015709

PATIENT
  Age: 34 Year
  Sex: Female

DRUGS (1)
  1. TYSABRI [Suspect]
     Indication: MULTIPLE SCLEROSIS
     Dosage: 300 MG; QM; IV
     Route: 042
     Dates: start: 20080228

REACTIONS (7)
  - CALCULUS URETERIC [None]
  - FATIGUE [None]
  - FEELING ABNORMAL [None]
  - INFUSION RELATED REACTION [None]
  - NAUSEA [None]
  - NEPHROLITHIASIS [None]
  - VITAMIN D DECREASED [None]
